FAERS Safety Report 15700093 (Version 3)
Quarter: 2018Q4

REPORT INFORMATION
  Report Type: Spontaneous
  Country: CN (occurrence: CN)
  Receive Date: 20181207
  Receipt Date: 20181228
  Transmission Date: 20190205
  Serious: Yes (Congenital Anomaly, Other)
  Sender: FDA-Public Use
  Company Number: CN-GILEAD-2018-0379034

PATIENT
  Sex: Male
  Weight: 3.23 kg

DRUGS (3)
  1. VIREAD [Suspect]
     Active Substance: TENOFOVIR DISOPROXIL FUMARATE
     Indication: CHRONIC HEPATITIS B
     Dosage: 1 DF, QD
     Route: 064
     Dates: start: 2018
  2. GLYCYRRHIZIN [GLYCYRRHIZIC ACID] [Suspect]
     Active Substance: GLYCYRRHIZIN
     Indication: PROPHYLAXIS
     Route: 065
  3. TENOFOVIR DISOPROXIL FUMARATE. [Suspect]
     Active Substance: TENOFOVIR DISOPROXIL FUMARATE
     Indication: CHRONIC HEPATITIS B
     Dosage: 1 DF, QD
     Route: 064
     Dates: start: 201809

REACTIONS (2)
  - Foetal exposure during pregnancy [Recovered/Resolved]
  - Hermaphroditism [Unknown]
